FAERS Safety Report 4507723-4 (Version None)
Quarter: 2004Q4

REPORT INFORMATION
  Report Type: 
  Country: None (occurrence: None)
  Receive Date: 20041015
  Receipt Date: 20031229
  Transmission Date: 20050328
  Serious: Yes (Other)
  Sender: FDA-Public Use
  Company Number: 2003119381

PATIENT
  Age: 40 Year
  Sex: Female
  Weight: 68.9467 kg

DRUGS (1)
  1. NEURONTIN [Suspect]
     Indication: NEUROPATHY
     Dosage: ORAL
     Route: 048
     Dates: start: 19980101, end: 20000101

REACTIONS (5)
  - DEPRESSION [None]
  - HALLUCINATION, AUDITORY [None]
  - MUSCLE SPASMS [None]
  - PAIN [None]
  - SUICIDAL IDEATION [None]
